FAERS Safety Report 7078546-X (Version None)
Quarter: 2010Q4

REPORT INFORMATION
  Report Type: 
  Country: None (occurrence: None)
  Receive Date: 20101102
  Receipt Date: 20101024
  Transmission Date: 20110411
  Serious: Yes (Other)
  Sender: FDA-Public Use
  Company Number: US-ABBOTT-10P-163-0681594-00

PATIENT

DRUGS (4)
  1. HUMIRA [Suspect]
     Indication: PSORIASIS
     Dates: start: 20080401, end: 20100201
  2. HYDROCHLOROTHIAZIDE [Concomitant]
     Indication: PRODUCT USED FOR UNKNOWN INDICATION
  3. DEXIMETHASONE CREAM [Concomitant]
     Indication: PRODUCT USED FOR UNKNOWN INDICATION
  4. BENZYL PEROXIDE [Concomitant]
     Indication: PSORIASIS

REACTIONS (2)
  - MYOCARDITIS [None]
  - VIRAL INFECTION [None]
